FAERS Safety Report 10356241 (Version 2)
Quarter: 2016Q2

REPORT INFORMATION
  Report Type: Spontaneous
  Country: FR (occurrence: FR)
  Receive Date: 20140801
  Receipt Date: 20160628
  Transmission Date: 20160815
  Serious: Yes (Hospitalization)
  Sender: FDA-Public Use
  Company Number: FR-ROCHE-1441842

PATIENT
  Age: 32 Year
  Sex: Female

DRUGS (9)
  1. VANCOMYCINE [Suspect]
     Active Substance: VANCOMYCIN
     Indication: ARTHRITIS BACTERIAL
     Route: 065
     Dates: start: 20140611, end: 20140625
  2. ORELOX [Concomitant]
     Active Substance: CEFPODOXIME
     Indication: VULVOVAGINITIS
     Route: 048
     Dates: start: 20140528, end: 20140601
  3. MORPHINE [Concomitant]
     Active Substance: MORPHINE
  4. ROCEPHINE [Suspect]
     Active Substance: CEFTRIAXONE SODIUM
     Indication: ARTHRITIS BACTERIAL
     Route: 065
     Dates: start: 20140611, end: 20140625
  5. LOVENOX [Concomitant]
     Active Substance: ENOXAPARIN SODIUM
  6. CONTRAMAL [Concomitant]
     Active Substance: TRAMADOL HYDROCHLORIDE
  7. ROCEPHINE [Suspect]
     Active Substance: CEFTRIAXONE SODIUM
     Route: 065
     Dates: start: 20160525
  8. MONAZOL [Concomitant]
     Active Substance: SERTACONAZOLE NITRATE
  9. PERFALGAN [Concomitant]
     Active Substance: ACETAMINOPHEN

REACTIONS (1)
  - Drug reaction with eosinophilia and systemic symptoms [Recovering/Resolving]

NARRATIVE: CASE EVENT DATE: 20140627
